FAERS Safety Report 8440339-6 (Version None)
Quarter: 2012Q2

REPORT INFORMATION
  Report Type: 
  Country: None (occurrence: None)
  Receive Date: 20120607
  Receipt Date: 20120531
  Transmission Date: 20120825
  Serious: Yes (Hospitalization)
  Sender: FDA-Public Use
  Company Number: WAES 1203USA03620

PATIENT
  Age: 15 Year
  Sex: Female

DRUGS (16)
  1. BROCCOLI + CARROT [Concomitant]
  2. FENTANYL [Concomitant]
  3. PHOTINIA PYRIFOLIA [Concomitant]
  4. RADIANCE [Concomitant]
  5. BACLOFEN [Concomitant]
  6. DECADRON [Suspect]
     Indication: INTRACRANIAL PRESSURE INCREASED
     Dosage: 4 MG, BID, PO
     Route: 048
     Dates: start: 20120326, end: 20120327
  7. BLACK CURRANT TEA [Concomitant]
  8. CYCLIZINE [Concomitant]
  9. LANSOPRAZOLE [Concomitant]
  10. MANUKA HONEY [Concomitant]
  11. MAXIDEX [Concomitant]
  12. TURMERIC [Concomitant]
  13. SERVEDOL [Concomitant]
  14. SELENIUM [Concomitant]
  15. RIDAFOROLIMUS [Suspect]
     Indication: NEOPLASM
     Dosage: 30 MG, DAILY, PO
     Route: 048
     Dates: start: 20120221, end: 20120224
  16. LYCOPENE [Concomitant]

REACTIONS (13)
  - PARAESTHESIA [None]
  - BLOOD SELENIUM INCREASED [None]
  - PARTIAL SEIZURES [None]
  - HAEMOGLOBIN DECREASED [None]
  - BACTERIAL INFECTION [None]
  - ALANINE AMINOTRANSFERASE INCREASED [None]
  - HEADACHE [None]
  - HYDROCEPHALUS [None]
  - ORAL HERPES [None]
  - ASPARTATE AMINOTRANSFERASE INCREASED [None]
  - PLATELET COUNT DECREASED [None]
  - FLUID INTAKE REDUCED [None]
  - FATIGUE [None]
